FAERS Safety Report 18846039 (Version 1)
Quarter: 2021Q1

REPORT INFORMATION
  Report Type: Spontaneous
  Country: US (occurrence: US)
  Receive Date: 20210204
  Receipt Date: 20210204
  Transmission Date: 20210419
  Serious: Yes (Other)
  Sender: FDA-Public Use
  Company Number: None

PATIENT
  Age: 83 Year
  Sex: Female
  Weight: 42.3 kg

DRUGS (1)
  1. RIVASTIGMINE. [Suspect]
     Active Substance: RIVASTIGMINE
     Indication: DEMENTIA
     Dosage: ?          QUANTITY:1 PATCH(ES);?
     Route: 061
     Dates: start: 20201220, end: 20210104

REACTIONS (3)
  - Gait inability [None]
  - Coma [None]
  - Movement disorder [None]

NARRATIVE: CASE EVENT DATE: 20210104
